FAERS Safety Report 19771082 (Version 1)
Quarter: 2021Q3

REPORT INFORMATION
  Report Type: Spontaneous
  Country: US (occurrence: US)
  Receive Date: 20210901
  Receipt Date: 20210901
  Transmission Date: 20211014
  Serious: Yes (Other)
  Sender: FDA-Public Use
  Company Number: None

PATIENT
  Age: 45 Year
  Sex: Female
  Weight: 101.25 kg

DRUGS (7)
  1. FASLODEX [Concomitant]
     Active Substance: FULVESTRANT
  2. GABAPENTIN. [Concomitant]
     Active Substance: GABAPENTIN
  3. ROBAXIN [Concomitant]
     Active Substance: METHOCARBAMOL
  4. OXYCODONE AND ACETAMINOPHEN [Concomitant]
     Active Substance: ACETAMINOPHEN\OXYCODONE HYDROCHLORIDE
  5. IBRANCE [Suspect]
     Active Substance: PALBOCICLIB
     Indication: BREAST CANCER
     Route: 048
     Dates: start: 20210713
  6. AMILOXATE. [Concomitant]
     Active Substance: AMILOXATE
  7. FERROUS SULFATE. [Concomitant]
     Active Substance: FERROUS SULFATE

REACTIONS (1)
  - White blood cell count decreased [None]

NARRATIVE: CASE EVENT DATE: 20210901
